FAERS Safety Report 15894773 (Version 3)
Quarter: 2019Q2

REPORT INFORMATION
  Report Type: Spontaneous
  Country: US (occurrence: US)
  Receive Date: 20190131
  Receipt Date: 20190603
  Transmission Date: 20190711
  Serious: No
  Sender: FDA-Public Use
  Company Number: US-PFIZER INC-2019044219

PATIENT
  Age: 70 Year
  Sex: Female

DRUGS (6)
  1. NEOSAR [Concomitant]
     Active Substance: CYCLOPHOSPHAMIDE
     Dosage: UNK
  2. LOTENSIN [CAPTOPRIL] [Concomitant]
     Dosage: UNK
  3. K-DUR [Concomitant]
     Active Substance: POTASSIUM CHLORIDE
     Dosage: UNK
  4. TAXOTERE [Suspect]
     Active Substance: DOCETAXEL
     Indication: BREAST CANCER
     Dosage: 151 MG, EVERY 3 WEEKS, 4 CYCLES
     Dates: start: 20120531, end: 20120802
  5. LASIX [Concomitant]
     Active Substance: FUROSEMIDE
     Dosage: UNK
  6. DOCETAXEL. [Suspect]
     Active Substance: DOCETAXEL
     Indication: BREAST CANCER
     Dosage: 151 MG, EVERY 3 WEEKS, 4 CYCLES
     Dates: start: 20120531, end: 20120802

REACTIONS (4)
  - Alopecia [Unknown]
  - Hair disorder [Unknown]
  - Hair colour changes [Unknown]
  - Hair texture abnormal [Unknown]

NARRATIVE: CASE EVENT DATE: 20120605
